FAERS Safety Report 10704425 (Version 1)
Quarter: 2015Q1

REPORT INFORMATION
  Report Type: Spontaneous
  Country: IT (occurrence: IT)
  Receive Date: 20150112
  Receipt Date: 20150112
  Transmission Date: 20150721
  Serious: Yes (Hospitalization)
  Sender: FDA-Public Use
  Company Number: PHHY2015IT000942

PATIENT
  Age: 46 Year
  Sex: Male

DRUGS (3)
  1. VALPROATE [Concomitant]
     Active Substance: VALPROATE SODIUM
     Indication: MOOD SWINGS
  2. OLANZAPINE. [Suspect]
     Active Substance: OLANZAPINE
     Indication: HALLUCINATION
     Dosage: 20 MG, QD
     Route: 065
  3. VALPROATE [Concomitant]
     Active Substance: VALPROATE SODIUM
     Indication: IMPULSIVE BEHAVIOUR
     Dosage: 400 MG, QD
     Route: 065

REACTIONS (11)
  - Suicidal ideation [Recovered/Resolved]
  - Depressed mood [Recovered/Resolved]
  - Hallucination, visual [Recovered/Resolved]
  - Disturbance in attention [Recovered/Resolved]
  - Hallucination [Recovered/Resolved]
  - Somatic hallucination [Recovered/Resolved]
  - Social avoidant behaviour [Recovered/Resolved]
  - Hallucination, auditory [Recovered/Resolved]
  - Terminal insomnia [Recovered/Resolved]
  - Anhedonia [Recovered/Resolved]
  - Fatigue [Recovered/Resolved]
